FAERS Safety Report 4872435-4 (Version None)
Quarter: 2005Q4

REPORT INFORMATION
  Report Type: 
  Country: None (occurrence: None)
  Receive Date: 20051201
  Receipt Date: 20050803
  Transmission Date: 20060501
  Serious: No
  Sender: FDA-Public Use
  Company Number: 2005PV000815

PATIENT
  Age: 58 Year
  Sex: Female
  Weight: 122.698 kg

DRUGS (26)
  1. BYETTA [Suspect]
     Indication: DIABETES MELLITUS NON-INSULIN-DEPENDENT
     Dosage: 5 MCG;BID;SC
     Route: 058
     Dates: start: 20050722
  2. CONTINUOUS POSITIVE AIRWAY PRESSURE [Concomitant]
  3. PLEXION CREAM [Concomitant]
  4. COZAAR [Concomitant]
  5. SINGULAIR [Concomitant]
  6. XANAX [Concomitant]
  7. ALLEGRA [Concomitant]
  8. BENADRYL ^WARNER-LAMBERT^ [Concomitant]
  9. MAG-OX [Concomitant]
  10. K-DUR 10 [Concomitant]
  11. CELEBREX [Concomitant]
  12. LITHOBID [Concomitant]
  13. SUCRALFATE [Concomitant]
  14. ABILIFY [Concomitant]
  15. ASPIRIN ENTERIC COATED K.P. [Concomitant]
  16. ADVAIR DISKUS 100/50 [Concomitant]
  17. ATROVENT [Concomitant]
  18. NASONEX [Concomitant]
  19. PRILOSEC [Concomitant]
  20. ACTOS [Concomitant]
  21. MAXAIR [Concomitant]
  22. LOMOTIL [Concomitant]
  23. IMODIUM [Concomitant]
  24. BENTYL [Concomitant]
  25. TYLENOL W/ CODEINE NO. 3 [Concomitant]
  26. EPIPEN [Concomitant]

REACTIONS (2)
  - BLOOD GLUCOSE INCREASED [None]
  - DECREASED APPETITE [None]
